FAERS Safety Report 9355308 (Version 1)
Quarter: 2013Q2

REPORT INFORMATION
  Report Type: Spontaneous
  Country: CN (occurrence: CN)
  Receive Date: 20130619
  Receipt Date: 20130619
  Transmission Date: 20140414
  Serious: Yes (Other)
  Sender: FDA-Public Use
  Company Number: CN-JNJFOC-20130601665

PATIENT
  Age: 35 Year
  Sex: Female
  Weight: 52 kg

DRUGS (10)
  1. ITRACONAZOLE [Suspect]
     Indication: INFECTIVE MYOSITIS
     Route: 042
  2. ITRACONAZOLE [Suspect]
     Indication: INFECTIVE MYOSITIS
     Dosage: LOADING DOSE FOR THE FIRST TWO DAYS
     Route: 042
  3. ITRACONAZOLE [Suspect]
     Indication: FUNGAEMIA
     Dosage: LOADING DOSE FOR THE FIRST TWO DAYS
     Route: 042
  4. ITRACONAZOLE [Suspect]
     Indication: FUNGAEMIA
     Route: 042
  5. ITRACONAZOLE [Suspect]
     Indication: INFECTIVE MYOSITIS
     Dosage: DAILY
     Route: 026
  6. FLUDARABINE [Suspect]
     Indication: ACUTE MYELOMONOCYTIC LEUKAEMIA
     Dosage: ON DAYS 1-5
  7. CYTARABINE [Suspect]
     Indication: ACUTE MYELOMONOCYTIC LEUKAEMIA
     Dosage: 1 G/M2 ON DAYS 1-5
  8. IMIPENEM/CILASTATIN [Suspect]
     Indication: EVIDENCE BASED TREATMENT
     Route: 065
  9. VANCOMYCIN [Suspect]
     Indication: EVIDENCE BASED TREATMENT
     Route: 065
  10. GRANULOCYTE COLONY-STIMULATING FACTOR [Concomitant]
     Route: 065

REACTIONS (3)
  - Infective myositis [Recovered/Resolved]
  - Drug ineffective [Recovered/Resolved]
  - Drug administered at inappropriate site [Not Recovered/Not Resolved]
